FAERS Safety Report 4700179-8 (Version None)
Quarter: 2005Q2

REPORT INFORMATION
  Report Type: 
  Country: None (occurrence: None)
  Receive Date: 20050627
  Receipt Date: 20050321
  Transmission Date: 20051028
  Serious: Yes (Other)
  Sender: FDA-Public Use
  Company Number: US-GLAXOSMITHKLINE-A0550555A

PATIENT
  Age: 47 Year
  Sex: Female
  Weight: 45 kg

DRUGS (5)
  1. NICODERM CQ [Suspect]
     Route: 062
     Dates: start: 20030101
  2. OXYGEN [Concomitant]
  3. PREDNISONE TAB [Concomitant]
  4. THEOPHYLLINE [Concomitant]
  5. OXYCODONE HCL [Concomitant]

REACTIONS (4)
  - CARDIAC FAILURE CONGESTIVE [None]
  - DRUG ABUSER [None]
  - LUNG DISORDER [None]
  - LUNG NEOPLASM MALIGNANT [None]
